FAERS Safety Report 6287511-1 (Version None)
Quarter: 2009Q3

REPORT INFORMATION
  Report Type: 
  Country: None (occurrence: None)
  Receive Date: 20090727
  Receipt Date: 20090715
  Transmission Date: 20100115
  Serious: Yes (Other)
  Sender: FDA-Public Use
  Company Number: 2008AL009399

PATIENT
  Age: 52 Year
  Sex: Female

DRUGS (23)
  1. DIGOXIN [Suspect]
     Indication: CARDIAC FAILURE CONGESTIVE
     Dosage: 0.125 MG, DAILY, PO
     Route: 048
  2. LASIX [Concomitant]
  3. MAGNESIUM OXIDE [Concomitant]
  4. PROZAC [Concomitant]
  5. ALTACE [Concomitant]
  6. COREG [Concomitant]
  7. HUMULIN R [Concomitant]
  8. DARVOCET [Concomitant]
  9. LANTUS [Concomitant]
  10. TYLENOL (CAPLET) [Concomitant]
  11. LEVAQUIN [Concomitant]
  12. FLAGYL [Concomitant]
  13. POTASSIUM CHLORIDE [Concomitant]
  14. LEVOFLOXACIN [Concomitant]
  15. METRONIDAZOLE [Concomitant]
  16. SUCRALFATE [Concomitant]
  17. SODIUM CHLORIDE [Concomitant]
  18. PANTOPRAZOLE SODIUM [Concomitant]
  19. NYSTATIN [Concomitant]
  20. ACETAMINOPHEN [Concomitant]
  21. CARVEDILOL [Concomitant]
  22. RAMIPRIL [Concomitant]
  23. DIPHENOXYL [Concomitant]

REACTIONS (12)
  - CARDIOMYOPATHY [None]
  - COLD SWEAT [None]
  - DECREASED APPETITE [None]
  - DEHYDRATION [None]
  - DIZZINESS [None]
  - DYSPNOEA [None]
  - GASTROENTERITIS [None]
  - HEART RATE IRREGULAR [None]
  - HYPOTENSION [None]
  - INJURY [None]
  - ORTHOPNOEA [None]
  - VISUAL IMPAIRMENT [None]
